FAERS Safety Report 24723963 (Version 12)
Quarter: 2025Q3

REPORT INFORMATION
  Report Type: Spontaneous
  Country: JP (occurrence: JP)
  Receive Date: 20241211
  Receipt Date: 20250903
  Transmission Date: 20251021
  Serious: Yes (Hospitalization, Other)
  Sender: APELLIS PHARMACEUTICALS
  Company Number: JP-BIOVITRUM-2024-JP-008057

PATIENT

DRUGS (1)
  1. EMPAVELI [Suspect]
     Active Substance: PEGCETACOPLAN
     Indication: Paroxysmal nocturnal haemoglobinuria
     Dosage: TWICE/WEEK
     Route: 058
     Dates: start: 20240514

REACTIONS (35)
  - Platelet count decreased [Not Recovered/Not Resolved]
  - Headache [Unknown]
  - Dizziness [Not Recovered/Not Resolved]
  - Administration site pain [Recovered/Resolved]
  - Administration site swelling [Recovered/Resolved]
  - Pulmonary oedema [Not Recovered/Not Resolved]
  - Abdominal rigidity [Not Recovered/Not Resolved]
  - Flatulence [Unknown]
  - Faecaloma [Unknown]
  - Injection site haemorrhage [Unknown]
  - Oedema peripheral [Not Recovered/Not Resolved]
  - Malaise [Unknown]
  - Ascites [Recovering/Resolving]
  - Varices oesophageal [Unknown]
  - Gastric polyps [Unknown]
  - Gastritis erosive [Unknown]
  - Abdominal pain [Not Recovered/Not Resolved]
  - Insomnia [Unknown]
  - Faeces discoloured [Unknown]
  - Flank pain [Unknown]
  - Fear of eating [Unknown]
  - Decreased appetite [Unknown]
  - Dyspnoea [Unknown]
  - Cataract [Unknown]
  - Glaucoma [Unknown]
  - Abdominal distension [Unknown]
  - Gastrooesophageal reflux disease [Unknown]
  - Blood lactate dehydrogenase increased [Unknown]
  - Drug ineffective [Unknown]
  - Colon cancer [Not Recovered/Not Resolved]
  - Hepatic cirrhosis [Unknown]
  - Anaemia [Unknown]
  - Disease progression [Not Recovered/Not Resolved]
  - Immune thrombocytopenia [Unknown]
  - Post procedural infection [Unknown]

NARRATIVE: CASE EVENT DATE: 20240901
